FAERS Safety Report 15568287 (Version 2)
Quarter: 2018Q4

REPORT INFORMATION
  Report Type: Spontaneous
  Country: SE (occurrence: SE)
  Receive Date: 20181031
  Receipt Date: 20181212
  Transmission Date: 20190205
  Serious: Yes (Other)
  Sender: FDA-Public Use
  Company Number: SE-BRISTOL-MYERS SQUIBB COMPANY-BMS-2018-099791

PATIENT
  Sex: Male

DRUGS (1)
  1. OPDIVO [Suspect]
     Active Substance: NIVOLUMAB
     Indication: MALIGNANT MELANOMA
     Dosage: UNK
     Route: 065

REACTIONS (9)
  - Balance disorder [Unknown]
  - Arthritis [Unknown]
  - Liver function test abnormal [Unknown]
  - Pneumonia [Unknown]
  - Urinary tract infection [Unknown]
  - Venous thrombosis [Unknown]
  - Blindness [Unknown]
  - Optic neuritis [Unknown]
  - Rash [Unknown]
